FAERS Safety Report 9677511 (Version 1)
Quarter: 2013Q4

REPORT INFORMATION
  Report Type: Report from Study
  Country: US (occurrence: US)
  Receive Date: 20131108
  Receipt Date: 20131108
  Transmission Date: 20140711
  Serious: Yes (Other)
  Sender: FDA-Public Use
  Company Number: US-ROCHE-1295193

PATIENT
  Sex: Female
  Weight: 105 kg

DRUGS (5)
  1. AVASTIN [Suspect]
     Indication: BRAIN NEOPLASM MALIGNANT
     Dosage: 01/JUN/2011,14/JUN/2011,28/JUN/2011,11/JUL/2011
     Route: 042
     Dates: start: 20110516
  2. AVASTIN [Suspect]
     Dosage: 09/AUG/2011, 23/AUG/2011
     Route: 042
     Dates: start: 20110726
  3. AVASTIN [Suspect]
     Dosage: 11/OCT/2011, 07/NOV/2011, 19/DEC/2011, 18/JAN/2012, 20/FEB/2012, 19/MAR/2012, 23/APR/2012, 30/MAY/20
     Route: 042
     Dates: start: 20110915
  4. AVASTIN [Suspect]
     Dosage: 03/JAN/ 2013, 16/JAN/2013, 30/JAN/2013, 13/FEB/2013, 1/MAR/2013, 14/MAR/2013, 27/MAR/2013, 10/APR/20
     Route: 042
     Dates: start: 20121220
  5. TEMODAR [Concomitant]

REACTIONS (5)
  - Acquired epileptic aphasia [Unknown]
  - Fatigue [Unknown]
  - Gait disturbance [Unknown]
  - Pain [Unknown]
  - Mental status changes [Unknown]
